FAERS Safety Report 6268239-0 (Version None)
Quarter: 2009Q3

REPORT INFORMATION
  Report Type: 
  Country: None (occurrence: None)
  Receive Date: 20090715
  Receipt Date: 20090709
  Transmission Date: 20100115
  Serious: Yes (Life-Threatening)
  Sender: FDA-Public Use
  Company Number: US-JNJFOC-20090702942

PATIENT
  Age: 30 Year
  Sex: Female

DRUGS (2)
  1. FENTANYL TRANSDERMAL SYSTEM [Suspect]
     Indication: SUICIDE ATTEMPT
     Route: 065
  2. BENZODIAZEPINE DERIVATIVES [Suspect]
     Indication: COMPLETED SUICIDE
     Route: 048

REACTIONS (5)
  - COMA [None]
  - INTENTIONAL DRUG MISUSE [None]
  - LETHARGY [None]
  - SOMNOLENCE [None]
  - SUICIDE ATTEMPT [None]
